FAERS Safety Report 6966324-9 (Version None)
Quarter: 2010Q3

REPORT INFORMATION
  Report Type: 
  Country: None (occurrence: None)
  Receive Date: 20100903
  Receipt Date: 20100827
  Transmission Date: 20110219
  Serious: Yes (Other)
  Sender: FDA-Public Use
  Company Number: US-GENENTECH-305909

PATIENT
  Sex: Female
  Weight: 103.5 kg

DRUGS (1)
  1. RITUXIMAB [Suspect]
     Indication: SYSTEMIC LUPUS ERYTHEMATOSUS
     Dosage: 1 G, X4
     Route: 042
     Dates: start: 20070814

REACTIONS (1)
  - BREAST CANCER [None]
